FAERS Safety Report 9464902 (Version 1)
Quarter: 2013Q3

REPORT INFORMATION
  Report Type: Spontaneous
  Country: US (occurrence: US)
  Receive Date: 20130819
  Receipt Date: 20130819
  Transmission Date: 20140515
  Serious: No
  Sender: FDA-Public Use
  Company Number: US-009507513-1308USA008242

PATIENT
  Sex: Female

DRUGS (1)
  1. CORICIDIN HBP COUGH AND COLD [Suspect]
     Indication: SNEEZING
     Dosage: UNK, UNKNOWN
     Route: 048

REACTIONS (2)
  - Increased upper airway secretion [Not Recovered/Not Resolved]
  - Drug ineffective [Unknown]
